FAERS Safety Report 9115932 (Version 2)
Quarter: 2013Q1

REPORT INFORMATION
  Report Type: Spontaneous
  Country: DE (occurrence: DE)
  Receive Date: 20130225
  Receipt Date: 20130325
  Transmission Date: 20140127
  Serious: Yes (Hospitalization)
  Sender: FDA-Public Use
  Company Number: DE-VIIV HEALTHCARE LIMITED-D0078877A

PATIENT
  Age: 44 Year
  Sex: Male
  Weight: 70 kg

DRUGS (3)
  1. KIVEXA [Suspect]
     Indication: HIV INFECTION
     Dosage: 900MG IN THE MORNING
     Route: 048
     Dates: start: 20120508, end: 20130217
  2. RALTEGRAVIR [Suspect]
     Indication: HIV INFECTION
     Dosage: 400MG UNKNOWN
     Route: 048
  3. TRIZIVIR [Concomitant]
     Indication: HIV INFECTION
     Dosage: 750MG TWICE PER DAY
     Route: 048
     Dates: start: 20050412, end: 20120507

REACTIONS (3)
  - Acute myocardial infarction [Recovered/Resolved with Sequelae]
  - Ventricular hypokinesia [Not Recovered/Not Resolved]
  - Hypertension [Unknown]
